FAERS Safety Report 6935003-6 (Version None)
Quarter: 2010Q3

REPORT INFORMATION
  Report Type: 
  Country: None (occurrence: None)
  Receive Date: 20100822
  Receipt Date: 20100809
  Transmission Date: 20110219
  Serious: Yes (Other)
  Sender: FDA-Public Use
  Company Number: PHHY2010CA51175

PATIENT
  Sex: Male

DRUGS (3)
  1. ZOLEDRONIC [Suspect]
     Dosage: 5 MG
     Route: 042
     Dates: start: 20080728
  2. ZOLEDRONIC [Suspect]
     Dosage: 5 MG
     Route: 042
     Dates: start: 20090731
  3. ZOLEDRONIC [Suspect]
     Dosage: 5 MG
     Route: 042
     Dates: start: 20100729

REACTIONS (4)
  - APHASIA [None]
  - CEREBROVASCULAR ACCIDENT [None]
  - MUSCLE SPASMS [None]
  - PAIN [None]
